FAERS Safety Report 16901912 (Version 16)
Quarter: 2023Q4

REPORT INFORMATION
  Report Type: Report from Study
  Country: JP (occurrence: JP)
  Receive Date: 20191010
  Receipt Date: 20231023
  Transmission Date: 20240110
  Serious: Yes (Hospitalization, Other)
  Sender: FDA-Public Use
  Company Number: JP-ABBVIE-19K-087-2937519-00

PATIENT
  Age: 81 Year
  Sex: Female
  Weight: 42 kg

DRUGS (20)
  1. CARBIDOPA\LEVODOPA [Suspect]
     Active Substance: CARBIDOPA\LEVODOPA
     Indication: Parkinson^s disease
     Route: 050
     Dates: start: 20210408, end: 20210506
  2. CARBIDOPA\LEVODOPA [Suspect]
     Active Substance: CARBIDOPA\LEVODOPA
     Dosage: MD: 11 ML?CD: 3.2 ML/HR ? 16 HRS?ED: 1.0 ML/UNIT ? 2
     Route: 050
     Dates: start: 20190730, end: 20190822
  3. CARBIDOPA\LEVODOPA [Suspect]
     Active Substance: CARBIDOPA\LEVODOPA
     Dosage: MD: 11 ML?CD: 3.0 ML/HR ? 16 HRS?ED: 1.0 ML/UNIT ? 2
     Route: 050
     Dates: start: 20190823, end: 20190826
  4. CARBIDOPA\LEVODOPA [Suspect]
     Active Substance: CARBIDOPA\LEVODOPA
     Dosage: MD: 11 ML?CD: 3.2 ML/HR ? 16 HRS?ED: 1.0 ML/UNIT ? 2
     Route: 050
     Dates: start: 20190827, end: 20190918
  5. CARBIDOPA\LEVODOPA [Suspect]
     Active Substance: CARBIDOPA\LEVODOPA
     Dosage: MD: 11 ML?CD: 3.4 ML/HR ? 16 HRS?ED: 1.0 ML/UNIT ? 2
     Route: 050
     Dates: start: 20190919, end: 20191009
  6. CARBIDOPA\LEVODOPA [Suspect]
     Active Substance: CARBIDOPA\LEVODOPA
     Dosage: MD: 11 ML?CD: 3.5 ML/HR ? 16 HRS?ED: 2.0 ML/UNIT ? 2
     Route: 050
     Dates: start: 20191010, end: 20200305
  7. CARBIDOPA\LEVODOPA [Suspect]
     Active Substance: CARBIDOPA\LEVODOPA
     Dosage: MD: 11.0 ML?CD: 3.8 ML/HR ? 16 HRS?ED: 2.0 ML/UNIT ? 2
     Route: 050
     Dates: start: 20200311, end: 20210205
  8. CARBIDOPA\LEVODOPA [Suspect]
     Active Substance: CARBIDOPA\LEVODOPA
     Dosage: MD: 13.0 ML?CD: 3.8 ML/HR ? 16 HRS?ED: 2.0 ML/UNIT ? 1
     Route: 050
     Dates: start: 20210211, end: 20210214
  9. CARBIDOPA\LEVODOPA [Suspect]
     Active Substance: CARBIDOPA\LEVODOPA
     Dosage: MD: 13.0 ML?CD: 4.0 ML/HR ? 16 HRS?ED: 2.0 ML/UNIT ? 1
     Route: 050
     Dates: start: 20210215, end: 20210311
  10. CARBIDOPA\LEVODOPA [Suspect]
     Active Substance: CARBIDOPA\LEVODOPA
     Dosage: MD: 13.0 ML?CD: 4.3 ML/HR ? 16 HRS?ED: 2.0 ML/UNIT ? 1
     Route: 050
     Dates: start: 20210311, end: 20210408
  11. CARBIDOPA\LEVODOPA [Suspect]
     Active Substance: CARBIDOPA\LEVODOPA
     Dosage: MD: 12.0 ML, CD: 4.2 ML/HR ? 8 HRS, ED: 2.0 ML/UNIT ? 1
     Route: 050
     Dates: start: 20210506
  12. ROTIGOTINE [Concomitant]
     Active Substance: ROTIGOTINE
     Indication: Parkinson^s disease
     Route: 062
  13. ENTACAPONE JG [Concomitant]
     Indication: Parkinson^s disease
     Route: 048
     Dates: start: 20191011
  14. VONOPRAZAN FUMARATE [Concomitant]
     Active Substance: VONOPRAZAN FUMARATE
     Indication: Prophylaxis
     Route: 048
  15. METHYLCOBALAMIN [Concomitant]
     Active Substance: METHYLCOBALAMIN
     Indication: Prophylaxis
     Route: 048
  16. LUBIPROSTONE [Concomitant]
     Active Substance: LUBIPROSTONE
     Indication: Prophylaxis
     Route: 048
  17. CLONAZEPAM [Concomitant]
     Active Substance: CLONAZEPAM
     Indication: Prophylaxis
  18. CLONAZEPAM [Concomitant]
     Active Substance: CLONAZEPAM
     Indication: Prophylaxis
     Route: 048
  19. CARBOCYSTEINE [Concomitant]
     Active Substance: CARBOCYSTEINE
     Indication: Prophylaxis
     Route: 048
  20. DIPHENIDOL HYDROCHLORIDE [Concomitant]
     Active Substance: DIPHENIDOL HYDROCHLORIDE
     Indication: Prophylaxis
     Route: 048

REACTIONS (12)
  - Intussusception [Recovered/Resolved]
  - Deep vein thrombosis [Recovered/Resolved]
  - Malaise [Recovered/Resolved]
  - Hypoacusis [Unknown]
  - Mobility decreased [Unknown]
  - Incorrect dose administered [Unknown]
  - Tremor [Unknown]
  - Chromaturia [Unknown]
  - Therapeutic product effect decreased [Unknown]
  - Bezoar [Recovered/Resolved]
  - Stoma site discharge [Not Recovered/Not Resolved]
  - Dyskinesia [Recovering/Resolving]

NARRATIVE: CASE EVENT DATE: 20190101
